FAERS Safety Report 6692303-5 (Version None)
Quarter: 2010Q2

REPORT INFORMATION
  Report Type: 
  Country: None (occurrence: None)
  Receive Date: 20100422
  Receipt Date: 20100413
  Transmission Date: 20101027
  Serious: Yes (Hospitalization, Other)
  Sender: FDA-Public Use
  Company Number: US-ASTRAZENECA-2010SE06365

PATIENT
  Sex: Male

DRUGS (7)
  1. NEXIUM [Suspect]
     Route: 048
  2. PLAVIX [Concomitant]
  3. METOPROLOL TARTRATE [Concomitant]
  4. JANUMET [Concomitant]
  5. LISINOPRIL [Concomitant]
  6. NORVASC [Concomitant]
  7. PRAVASTATIN [Concomitant]

REACTIONS (2)
  - LARYNGECTOMY [None]
  - NEOPLASM MALIGNANT [None]
